FAERS Safety Report 16619150 (Version 1)
Quarter: 2019Q3

REPORT INFORMATION
  Report Type: Spontaneous
  Country: US (occurrence: US)
  Receive Date: 20190723
  Receipt Date: 20190723
  Transmission Date: 20191004
  Serious: No
  Sender: FDA-Public Use
  Company Number: US-TEVA-2019-US-1081380

PATIENT
  Age: 79 Year
  Sex: Female

DRUGS (3)
  1. AMIKACIN. [Suspect]
     Active Substance: AMIKACIN
     Indication: INFECTIVE KERATITIS
     Dosage: 5 %
     Route: 065
  2. CLARITHROMYCIN. [Suspect]
     Active Substance: CLARITHROMYCIN
     Indication: INFECTIVE KERATITIS
     Dosage: 2 %
     Route: 065
  3. MOXIFLOXACIN. [Suspect]
     Active Substance: MOXIFLOXACIN
     Indication: INFECTIVE KERATITIS
     Dosage: 0.5 %
     Route: 065

REACTIONS (1)
  - Drug ineffective [Unknown]
